FAERS Safety Report 4751720-0 (Version None)
Quarter: 2005Q3

REPORT INFORMATION
  Report Type: 
  Country: None (occurrence: None)
  Receive Date: 20050824
  Receipt Date: 20050803
  Transmission Date: 20060218
  Serious: Yes (Life-Threatening, Hospitalization, Disabling, Other)
  Sender: FDA-Public Use
  Company Number: 2005AP04268

PATIENT
  Age: 19108 Day
  Sex: Male

DRUGS (8)
  1. IRESSA [Suspect]
     Indication: NON-SMALL CELL LUNG CANCER METASTATIC
     Route: 048
     Dates: start: 20020501, end: 20050803
  2. GEMCITABINE [Concomitant]
     Dosage: 1 CYCLE 2375 MG
     Dates: start: 20010201, end: 20010301
  3. TAXOL [Concomitant]
     Dosage: 1 CYCLE 250 MG
     Dates: start: 20010201, end: 20010301
  4. ETOPOSIDE [Concomitant]
     Dosage: 570MG X 6 CYCLES
     Dates: start: 20010401, end: 20010901
  5. CARBOPLATIN [Concomitant]
     Dosage: 550MG X 6 CYCLES
     Dates: start: 20010401, end: 20010901
  6. RADIOTHERAPY [Concomitant]
     Dosage: 30 GY TO LUNG, MEDIASTINUM +  CNS METASTASES
     Dates: start: 20010301, end: 20010301
  7. RADIOTHERAPY [Concomitant]
     Dosage: 36 GY TO LUNG;  8 GY TO CNS FRONTAL + OCCIPITAL BRAIN METASTASES
     Dates: start: 20011101, end: 20011101
  8. ANTICHOLESTEROL DRUGS [Concomitant]
     Route: 048
     Dates: start: 20040301

REACTIONS (2)
  - BLOOD CHOLESTEROL INCREASED [None]
  - NON-HODGKIN'S LYMPHOMA [None]
